FAERS Safety Report 14159929 (Version 1)
Quarter: 2017Q4

REPORT INFORMATION
  Report Type: Spontaneous
  Country: FR (occurrence: FR)
  Receive Date: 20171106
  Receipt Date: 20171106
  Transmission Date: 20180321
  Serious: Yes (Other)
  Sender: FDA-Public Use
  Company Number: FR-MERCK KGAA-2033256

PATIENT
  Age: 60 Year
  Sex: Female

DRUGS (6)
  1. NOVOTHYROX [Suspect]
     Active Substance: LEVOTHYROXINE SODIUM
     Indication: POST PROCEDURAL HYPOTHYROIDISM
     Dates: start: 201705
  2. LEVOTHYROX [Suspect]
     Active Substance: LEVOTHYROXINE
  3. HAVLANE(LOPRAZOLAM MESILATE) [Concomitant]
  4. LEVOTHYROX [Suspect]
     Active Substance: LEVOTHYROXINE
  5. TAMOXIFEN [Suspect]
     Active Substance: TAMOXIFEN
     Dates: end: 20170801
  6. LEXOMIL(BROMAZEPAM) [Concomitant]

REACTIONS (8)
  - Blood thyroid stimulating hormone abnormal [None]
  - Mood swings [None]
  - Asthenia [None]
  - Hot flush [None]
  - Dizziness [None]
  - Palpitations [None]
  - Headache [None]
  - Hyperthyroidism [None]

NARRATIVE: CASE EVENT DATE: 2017
